FAERS Safety Report 19656307 (Version 4)
Quarter: 2021Q3

REPORT INFORMATION
  Report Type: Spontaneous
  Country: BR (occurrence: BR)
  Receive Date: 20210804
  Receipt Date: 20210901
  Transmission Date: 20211014
  Serious: Yes (Other)
  Sender: FDA-Public Use
  Company Number: BR-SA-2021SA253213

PATIENT
  Sex: Female

DRUGS (3)
  1. STILNOX [Suspect]
     Active Substance: ZOLPIDEM TARTRATE
     Dosage: UNK
  2. STILNOX [Suspect]
     Active Substance: ZOLPIDEM TARTRATE
     Dosage: UNK
  3. STILNOX [Suspect]
     Active Substance: ZOLPIDEM TARTRATE
     Indication: PRODUCT USED FOR UNKNOWN INDICATION
     Dosage: UNK
     Route: 065

REACTIONS (12)
  - Amnesia [Unknown]
  - Fall [Unknown]
  - Tooth injury [Unknown]
  - Fracture [Unknown]
  - Multiple fractures [Unknown]
  - Memory impairment [Unknown]
  - Loss of consciousness [Unknown]
  - Facial bones fracture [Unknown]
  - Unevaluable event [Unknown]
  - Spinal fracture [Unknown]
  - Contusion [Unknown]
  - Injury [Unknown]

NARRATIVE: CASE EVENT DATE: 20210718
